FAERS Safety Report 12278513 (Version 4)
Quarter: 2016Q3

REPORT INFORMATION
  Report Type: Report from Study
  Country: BR (occurrence: BR)
  Receive Date: 20160418
  Receipt Date: 20160805
  Transmission Date: 20161109
  Serious: Yes (Hospitalization, Other)
  Sender: FDA-Public Use
  Company Number: BR-ABBVIE-16K-020-1605643-00

PATIENT
  Age: 72 Year
  Sex: Female
  Weight: 53 kg

DRUGS (1)
  1. HUMIRA [Suspect]
     Active Substance: ADALIMUMAB
     Indication: RHEUMATOID ARTHRITIS
     Route: 058
     Dates: start: 20131201, end: 201605

REACTIONS (6)
  - Yellow skin [Recovered/Resolved]
  - Pericardial effusion [Unknown]
  - Cholelithiasis [Recovered/Resolved]
  - Drug ineffective [Unknown]
  - Abdominal pain upper [Recovered/Resolved]
  - Lung disorder [Unknown]

NARRATIVE: CASE EVENT DATE: 201605
